FAERS Safety Report 9694319 (Version 2)
Quarter: 2013Q4

REPORT INFORMATION
  Report Type: Spontaneous
  Country: US (occurrence: US)
  Receive Date: 20131118
  Receipt Date: 20131118
  Transmission Date: 20140711
  Serious: Yes (Other)
  Sender: FDA-Public Use
  Company Number: US-GILEAD-2007-0013007

PATIENT
  Age: 40 Year
  Sex: Female
  Weight: 72.57 kg

DRUGS (9)
  1. LETAIRIS [Suspect]
     Indication: PULMONARY ARTERIAL HYPERTENSION
     Route: 048
     Dates: start: 20070804
  2. REMODULIN [Concomitant]
     Indication: PULMONARY ARTERIAL HYPERTENSION
     Route: 042
     Dates: start: 20050802
  3. SITAXENTAN [Concomitant]
     Indication: PULMONARY ARTERIAL HYPERTENSION
  4. DIGOXIN [Concomitant]
     Indication: CARDIAC FAILURE CONGESTIVE
     Route: 048
  5. FUROSEMIDE [Concomitant]
     Indication: CARDIAC FAILURE CONGESTIVE
     Route: 048
  6. SPIRONOLACTONE [Concomitant]
     Indication: CARDIAC FAILURE CONGESTIVE
     Route: 048
  7. WARFARIN SODIUM [Concomitant]
     Indication: COAGULOPATHY
     Route: 048
  8. GABAPENTIN [Concomitant]
     Indication: NEURALGIA
     Route: 048
  9. DIPHENOXYLATE [Concomitant]
     Indication: DIARRHOEA

REACTIONS (1)
  - Nasal congestion [Not Recovered/Not Resolved]
